FAERS Safety Report 12639150 (Version 3)
Quarter: 2016Q4

REPORT INFORMATION
  Report Type: Spontaneous
  Country: JP (occurrence: JP)
  Receive Date: 20160810
  Receipt Date: 20161010
  Transmission Date: 20170207
  Serious: Yes (Hospitalization)
  Sender: FDA-Public Use
  Company Number: JP-ROCHE-1810745

PATIENT
  Age: 75 Year
  Sex: Female

DRUGS (4)
  1. EDIROL [Concomitant]
     Active Substance: ELDECALCITOL
     Dosage: DOSAGE IS UNCERTAIN.
     Route: 048
     Dates: start: 20160717
  2. BONVIVA [Suspect]
     Active Substance: IBANDRONATE SODIUM
     Indication: PRODUCT USED FOR UNKNOWN INDICATION
     Dosage: MOST RECENT DOSE: 27/JUL/2016
     Route: 048
     Dates: start: 20160717, end: 20160727
  3. GASTER [Concomitant]
     Active Substance: FAMOTIDINE
     Dosage: DOSAGE IS UNCERTAIN.
     Route: 065
     Dates: start: 20160706
  4. LOXONIN [Suspect]
     Active Substance: LOXOPROFEN SODIUM
     Indication: PRODUCT USED FOR UNKNOWN INDICATION
     Dosage: DOSAGE IS UNCERTAIN.
     Route: 048
     Dates: start: 20160706

REACTIONS (3)
  - Gastrointestinal disorder [Recovered/Resolved]
  - Acute phase reaction [Recovered/Resolved]
  - Weight decreased [Recovered/Resolved]

NARRATIVE: CASE EVENT DATE: 20160721
